FAERS Safety Report 13860867 (Version 1)
Quarter: 2017Q3

REPORT INFORMATION
  Report Type: Spontaneous
  Country: US (occurrence: US)
  Receive Date: 20170811
  Receipt Date: 20170811
  Transmission Date: 20171127
  Serious: No
  Sender: FDA-Public Use
  Company Number: None

PATIENT
  Age: 64 Year
  Sex: Female
  Weight: 90 kg

DRUGS (3)
  1. TAXOL [Suspect]
     Active Substance: PACLITAXEL
     Dates: end: 20170707
  2. METFORMIN HYDROCHLORIDE. [Suspect]
     Active Substance: METFORMIN HYDROCHLORIDE
     Dates: end: 20170630
  3. CARBOPLATIN. [Suspect]
     Active Substance: CARBOPLATIN
     Dates: end: 20170707

REACTIONS (7)
  - Hypokalaemia [None]
  - Blood creatinine increased [None]
  - Hypoalbuminaemia [None]
  - Diarrhoea [None]
  - Hypocalcaemia [None]
  - Anaemia [None]
  - Fatigue [None]

NARRATIVE: CASE EVENT DATE: 20170728
